FAERS Safety Report 7558447-0 (Version None)
Quarter: 2011Q2

REPORT INFORMATION
  Report Type: 
  Country: None (occurrence: None)
  Receive Date: 20110620
  Receipt Date: 20110614
  Transmission Date: 20111010
  Serious: Yes (Hospitalization)
  Sender: FDA-Public Use
  Company Number: FR-GILEAD-2011-0040673

PATIENT
  Sex: Male

DRUGS (4)
  1. BACTRIM [Suspect]
     Route: 047
     Dates: start: 20110505, end: 20110513
  2. NORVIR [Suspect]
     Route: 048
     Dates: start: 20110509, end: 20110516
  3. PREZISTA [Suspect]
     Route: 048
     Dates: start: 20110505, end: 20110516
  4. TRUVADA [Suspect]
     Indication: HIV INFECTION
     Route: 048
     Dates: start: 20110509, end: 20110516

REACTIONS (6)
  - MUCOUS MEMBRANE DISORDER [None]
  - BLOOD CREATININE INCREASED [None]
  - PALATAL OEDEMA [None]
  - RASH [None]
  - TOXIC SKIN ERUPTION [None]
  - FACE OEDEMA [None]
